FAERS Safety Report 6257593-1 (Version None)
Quarter: 2009Q3

REPORT INFORMATION
  Report Type: 
  Country: None (occurrence: None)
  Receive Date: 20090706
  Receipt Date: 20090624
  Transmission Date: 20100115
  Serious: Yes (Death, Other)
  Sender: FDA-Public Use
  Company Number: CA-PURDUE-CAN-2009-0001034

PATIENT
  Age: 29 Year
  Sex: Male

DRUGS (1)
  1. OXYCONTIN [Suspect]
     Indication: PAIN

REACTIONS (8)
  - ABDOMINAL PAIN UPPER [None]
  - CHILLS [None]
  - COMPLETED SUICIDE [None]
  - DIARRHOEA [None]
  - DRUG ABUSE [None]
  - DRUG DEPENDENCE [None]
  - DRUG WITHDRAWAL SYNDROME [None]
  - NAUSEA [None]
